FAERS Safety Report 14044170 (Version 1)
Quarter: 2017Q4

REPORT INFORMATION
  Report Type: Spontaneous
  Country: US (occurrence: US)
  Receive Date: 20171004
  Receipt Date: 20171004
  Transmission Date: 20180321
  Serious: Yes (Other)
  Sender: FDA-Public Use
  Company Number: None

PATIENT
  Age: 29 Year
  Sex: Female
  Weight: 84.09 kg

DRUGS (1)
  1. BUPIVACAINE SPINAL [Suspect]
     Active Substance: BUPIVACAINE
     Indication: PREGNANCY
     Dates: start: 20171003, end: 20171003

REACTIONS (1)
  - Drug ineffective [None]

NARRATIVE: CASE EVENT DATE: 20171003
